FAERS Safety Report 9683361 (Version 2)
Quarter: 2013Q4

REPORT INFORMATION
  Report Type: Spontaneous
  Country: US (occurrence: US)
  Receive Date: 20131112
  Receipt Date: 20131202
  Transmission Date: 20140711
  Serious: No
  Sender: FDA-Public Use
  Company Number: US-PFIZER INC-2013321214

PATIENT
  Age: 12 Year
  Sex: Male

DRUGS (4)
  1. GEODON [Suspect]
     Indication: AFFECTIVE DISORDER
     Dosage: 20 MG, UNK
     Route: 048
     Dates: start: 201212, end: 201305
  2. GEODON [Suspect]
     Indication: GENERALISED ANXIETY DISORDER
  3. TRAZODONE [Concomitant]
     Dosage: UNK
  4. INTUNIV [Concomitant]
     Dosage: UNK

REACTIONS (4)
  - Skin odour abnormal [Not Recovered/Not Resolved]
  - Aggression [Recovered/Resolved]
  - Crying [Recovered/Resolved]
  - Emotional disorder [Recovered/Resolved]
